FAERS Safety Report 18242641 (Version 1)
Quarter: 2020Q3

REPORT INFORMATION
  Report Type: Spontaneous
  Country: US (occurrence: US)
  Receive Date: 20200908
  Receipt Date: 20200908
  Transmission Date: 20201103
  Serious: Yes (Other)
  Sender: FDA-Public Use
  Company Number: US-MYLANLABS-2020M1076286

PATIENT
  Sex: Female
  Weight: 102 kg

DRUGS (4)
  1. CARVEDILOL TABLETS, USP [Suspect]
     Active Substance: CARVEDILOL
     Indication: HYPERTENSION
     Dosage: 12.5 MILLIGRAM, QD
     Route: 048
  2. HYDROCHLOROTHIAZIDE. [Concomitant]
     Active Substance: HYDROCHLOROTHIAZIDE
  3. IBUPROFEN. [Concomitant]
     Active Substance: IBUPROFEN
  4. PHENOBARBITAL. [Concomitant]
     Active Substance: PHENOBARBITAL
     Dosage: UNK

REACTIONS (5)
  - Urinary incontinence [Not Recovered/Not Resolved]
  - Ligament sprain [Unknown]
  - Pain in extremity [Not Recovered/Not Resolved]
  - Monoplegia [Unknown]
  - Diarrhoea [Not Recovered/Not Resolved]
